FAERS Safety Report 4723185-6 (Version None)
Quarter: 2005Q3

REPORT INFORMATION
  Report Type: 
  Country: None (occurrence: None)
  Receive Date: 20050719
  Receipt Date: 20040820
  Transmission Date: 20060218
  Serious: Yes (Hospitalization)
  Sender: FDA-Public Use
  Company Number: 2004231203US

PATIENT
  Age: 83 Year
  Sex: Female

DRUGS (7)
  1. CELEBREX [Suspect]
     Indication: ARTHRITIS
     Dosage: SEE IMAGE
     Route: 065
     Dates: start: 20000511
  2. CELEBREX [Suspect]
     Indication: ARTHRITIS
     Dosage: SEE IMAGE
     Route: 065
     Dates: start: 20000615
  3. PROCARDIA XL [Concomitant]
  4. MECLOZINE (MECLOZINE) [Concomitant]
  5. POTASSIUM CHLORIDE [Concomitant]
  6. ALLOPURINOL [Concomitant]
  7. LASIX [Concomitant]

REACTIONS (1)
  - TRANSIENT ISCHAEMIC ATTACK [None]
